FAERS Safety Report 18144814 (Version 1)
Quarter: 2020Q3

REPORT INFORMATION
  Report Type: Spontaneous
  Country: US (occurrence: US)
  Receive Date: 20200813
  Receipt Date: 20200813
  Transmission Date: 20201103
  Serious: Yes (Other)
  Sender: FDA-Public Use
  Company Number: None

PATIENT
  Sex: Male

DRUGS (2)
  1. LATANOPROST. [Suspect]
     Active Substance: LATANOPROST
  2. XALATAN [Suspect]
     Active Substance: LATANOPROST

REACTIONS (3)
  - Drug ineffective [None]
  - Erythema [None]
  - Eye irritation [None]
